FAERS Safety Report 6149498-1 (Version None)
Quarter: 2009Q2

REPORT INFORMATION
  Report Type: 
  Country: None (occurrence: None)
  Receive Date: 20090409
  Receipt Date: 20090401
  Transmission Date: 20091009
  Serious: Yes (Other)
  Sender: FDA-Public Use
  Company Number: DE-ROCHE-625033

PATIENT
  Sex: Female
  Weight: 87.9 kg

DRUGS (11)
  1. METHOXY POLYETHYLENE GLYCOL-EPOETIN BETA [Suspect]
     Dosage: DOSAGE FORM REPORTED AS SYRINGE.
     Route: 058
     Dates: start: 20081203, end: 20090401
  2. PREDNISONE [Concomitant]
     Dosage: DRUG NAME REPORTED AS PREDNISON.
     Dates: start: 20030701
  3. PROGRAF [Concomitant]
     Dates: start: 20050119
  4. METOPROLOL [Concomitant]
     Dates: start: 20020911
  5. BLOPRESS [Concomitant]
     Dates: start: 20050713
  6. FUROSEMID [Concomitant]
     Dates: start: 20020911
  7. LOCOL [Concomitant]
     Dates: start: 20080423
  8. ASPIRIN [Concomitant]
     Dates: start: 20020305
  9. REPAGLINIDE [Concomitant]
     Dates: start: 20080423
  10. HAEMOPROTECT [Concomitant]
     Dosage: DRUG NAME REPORTED AS HAMOPROTECT.
     Dates: start: 20070328
  11. ALLOPURINOL [Concomitant]
     Dates: start: 20070328

REACTIONS (1)
  - APLASIA PURE RED CELL [None]
